FAERS Safety Report 7019553-2 (Version None)
Quarter: 2010Q3

REPORT INFORMATION
  Report Type: 
  Country: None (occurrence: None)
  Receive Date: 20100928
  Receipt Date: 20100928
  Transmission Date: 20110219
  Serious: Yes (Other)
  Sender: FDA-Public Use
  Company Number: None

PATIENT
  Age: 47 Year
  Sex: Female
  Weight: 78.0187 kg

DRUGS (2)
  1. OXYCONTIN [Suspect]
     Indication: BACK PAIN
     Dosage: 20 MG 1 TABLET 2 TIMES D PO
     Route: 048
     Dates: start: 20100924, end: 20100926
  2. OXYCONTIN [Suspect]
     Indication: PAIN IN EXTREMITY
     Dosage: 20 MG 1 TABLET 2 TIMES D PO
     Route: 048
     Dates: start: 20100924, end: 20100926

REACTIONS (9)
  - ABDOMINAL PAIN UPPER [None]
  - ASTHMA [None]
  - CONDITION AGGRAVATED [None]
  - DIARRHOEA [None]
  - DRUG EFFECT DECREASED [None]
  - DYSPEPSIA [None]
  - HEADACHE [None]
  - NAUSEA [None]
  - VOMITING [None]
